FAERS Safety Report 23526666 (Version 1)
Quarter: 2024Q1

REPORT INFORMATION
  Report Type: Spontaneous
  Country: IN (occurrence: IN)
  Receive Date: 20240215
  Receipt Date: 20240215
  Transmission Date: 20240410
  Serious: Yes (Death, Other)
  Sender: FDA-Public Use
  Company Number: IN-PFIZER INC-202200611807

PATIENT
  Age: 22 Year
  Sex: Female

DRUGS (6)
  1. METHYLPREDNISOLONE SODIUM SUCCINATE [Suspect]
     Active Substance: METHYLPREDNISOLONE SODIUM SUCCINATE
     Indication: Systemic lupus erythematosus
     Dosage: UNK
  2. CYCLOPHOSPHAMIDE [Suspect]
     Active Substance: CYCLOPHOSPHAMIDE
     Indication: Antiphospholipid syndrome
     Dosage: 750 MG
  3. HUMAN IMMUNOGLOBULIN G [Concomitant]
     Active Substance: HUMAN IMMUNOGLOBULIN G
     Indication: Systemic lupus erythematosus
     Dosage: UNK
  4. HUMAN IMMUNOGLOBULIN G [Concomitant]
     Active Substance: HUMAN IMMUNOGLOBULIN G
     Indication: Pulmonary embolism
  5. FONDAPARINUX [Concomitant]
     Active Substance: FONDAPARINUX
     Indication: Pulmonary embolism
     Dosage: UNK
  6. FONDAPARINUX [Concomitant]
     Active Substance: FONDAPARINUX
     Indication: Pulmonary embolism

REACTIONS (3)
  - Drug ineffective [Fatal]
  - Cytokine storm [Fatal]
  - Neutropenic sepsis [Fatal]
